FAERS Safety Report 7232858-5 (Version None)
Quarter: 2011Q1

REPORT INFORMATION
  Report Type: 
  Country: None (occurrence: None)
  Receive Date: 20110119
  Receipt Date: 20110106
  Transmission Date: 20110831
  Serious: No
  Sender: FDA-Public Use
  Company Number: US-B.I. PHARMACEUTICALS,INC./RIDGEFIELD-2011-BP-00722BP

PATIENT
  Sex: Female

DRUGS (19)
  1. HYZAAR [Concomitant]
     Indication: CARDIAC DISORDER
  2. THERAGAM M [Concomitant]
     Indication: PROPHYLAXIS
  3. CO Q10 [Concomitant]
     Indication: PROPHYLAXIS
  4. LOPRESSOR [Concomitant]
     Indication: HYPERTENSION
  5. VITAMIN B6 [Concomitant]
     Indication: PROPHYLAXIS
  6. PLAVIX [Concomitant]
     Indication: CARDIAC DISORDER
  7. GLIPIZIDE [Concomitant]
     Indication: DIABETES MELLITUS
  8. NORVASC [Concomitant]
     Indication: HYPERTENSION
  9. VITAMIN B-12 [Concomitant]
     Indication: PROPHYLAXIS
  10. ISOSORBIDE DINITRATE [Concomitant]
     Indication: CARDIAC DISORDER
  11. PRADAXA [Suspect]
     Indication: ANTICOAGULANT THERAPY
     Dosage: 300 MG
     Route: 048
     Dates: start: 20101209, end: 20101230
  12. ASA [Concomitant]
     Indication: PROPHYLAXIS
  13. NEXIUM [Concomitant]
     Indication: ABDOMINAL DISCOMFORT
  14. METFORMIN [Concomitant]
     Indication: DIABETES MELLITUS
  15. LEVOXYL [Concomitant]
     Indication: HYPOTHYROIDISM
  16. PRAVASTATIN SODIUM [Concomitant]
     Indication: BLOOD CHOLESTEROL INCREASED
  17. VITAMIN D [Concomitant]
     Indication: PROPHYLAXIS
  18. CELEBREX [Concomitant]
     Indication: BACK PAIN
  19. FISH OIL [Concomitant]
     Indication: PROPHYLAXIS

REACTIONS (3)
  - HEADACHE [None]
  - NAUSEA [None]
  - FREQUENT BOWEL MOVEMENTS [None]
